FAERS Safety Report 20746457 (Version 22)
Quarter: 2024Q3

REPORT INFORMATION
  Report Type: Spontaneous
  Country: US (occurrence: US)
  Receive Date: 20220425
  Receipt Date: 20240807
  Transmission Date: 20241016
  Serious: No
  Sender: PFIZER
  Company Number: US-PFIZER INC-2019177699

PATIENT
  Age: 58 Year
  Sex: Male

DRUGS (38)
  1. SOMAVERT [Suspect]
     Active Substance: PEGVISOMANT
     Indication: Acromegaly
     Dosage: 20 MG, DAILY
     Route: 058
     Dates: start: 20181130
  2. SOMAVERT [Suspect]
     Active Substance: PEGVISOMANT
     Indication: Gigantism
     Dosage: 20 MG, ALTERNATE DAY (EVERY OTHER DAY)
     Route: 058
  3. SOMAVERT [Suspect]
     Active Substance: PEGVISOMANT
     Dosage: 30 MG, 2X/WEEK
     Route: 058
     Dates: start: 20220203
  4. SOMAVERT [Suspect]
     Active Substance: PEGVISOMANT
     Dosage: 30 MG, THREE TIME WEEKLY
     Route: 058
     Dates: start: 20220203
  5. SOMAVERT [Suspect]
     Active Substance: PEGVISOMANT
     Dosage: 30 MG, THREE TIME WEEKLY/INJECT 30 MG UNDER THE SKIN (SUBCUTANEOUS INJECTION) THREE TIMES WEEKLY
     Route: 058
     Dates: start: 20220203
  6. SOMAVERT [Suspect]
     Active Substance: PEGVISOMANT
     Dosage: 30 MG, THREE TIME WEEKLY/INJECT 30 MG UNDER THE SKIN (SUBCUTANEOUS INJECTION) THREE TIMES WEEKLY
     Route: 058
     Dates: start: 20220203
  7. ACETAMINOPHEN [Concomitant]
     Active Substance: ACETAMINOPHEN
     Dosage: 500 MG
  8. AMLODIPINE [Concomitant]
     Active Substance: AMLODIPINE BESYLATE
     Dosage: 2.5 MG
  9. AMLODIPINE [Concomitant]
     Active Substance: AMLODIPINE BESYLATE
     Dosage: 10 MG
  10. BASAGLAR [Concomitant]
     Active Substance: INSULIN GLARGINE
     Dosage: 100 IU
  11. CARVEDILOL [Concomitant]
     Active Substance: CARVEDILOL
     Dosage: 12.5 MG
  12. CETIRIZINE [Concomitant]
     Active Substance: CETIRIZINE HYDROCHLORIDE
     Dosage: 10 MG
  13. CIALIS [Concomitant]
     Active Substance: TADALAFIL
     Dosage: 5 MG
  14. COENZYME Q10 [Concomitant]
     Active Substance: DIETARY SUPPLEMENT\UBIDECARENONE
     Dosage: 200 MG
  15. EZETIMIBE [Concomitant]
     Active Substance: EZETIMIBE
     Dosage: 10 MG
  16. FINASTERIDE [Concomitant]
     Active Substance: FINASTERIDE
     Dosage: 5 MG
  17. JARDIANCE [Concomitant]
     Active Substance: EMPAGLIFLOZIN
     Dosage: 10 MG
  18. LEVEMIR [Concomitant]
     Active Substance: INSULIN DETEMIR
     Dosage: UNK
  19. HUMALOG JUNIOR KWIKPEN [Concomitant]
     Active Substance: INSULIN LISPRO
     Dosage: UNK (100/ML)
  20. HYDROCHLOROTHIAZIDE [Concomitant]
     Active Substance: HYDROCHLOROTHIAZIDE
     Dosage: 25 MG
  21. LEVOTHYROXINE [Concomitant]
     Active Substance: LEVOTHYROXINE\LEVOTHYROXINE SODIUM
     Dosage: 100 UG
  22. LEVOTHYROXINE [Concomitant]
     Active Substance: LEVOTHYROXINE\LEVOTHYROXINE SODIUM
     Dosage: 200 UG
  23. LEVOTHYROXINE [Concomitant]
     Active Substance: LEVOTHYROXINE\LEVOTHYROXINE SODIUM
     Dosage: 25 UG
  24. LISINOPRIL [Concomitant]
     Active Substance: LISINOPRIL
     Dosage: 5 MG
  25. LISINOPRIL [Concomitant]
     Active Substance: LISINOPRIL
     Dosage: 20 MG
  26. METFORMIN HYDROCHLORIDE [Concomitant]
     Active Substance: METFORMIN HYDROCHLORIDE
     Dosage: 500 MG
  27. MELATONIN [Concomitant]
     Active Substance: MELATONIN
     Dosage: 5 MG
  28. VITAMINS [Concomitant]
     Active Substance: VITAMINS
     Dosage: UNK
  29. NOVOLOG [Concomitant]
     Active Substance: INSULIN ASPART
     Dosage: UNK (100/ML)
  30. OCTREOTIDE [Concomitant]
     Active Substance: OCTREOTIDE\OCTREOTIDE ACETATE
     Dosage: 500 UG
  31. BIFIDOBACTERIUM ANIMALIS LACTIS [Concomitant]
     Active Substance: BIFIDOBACTERIUM ANIMALIS LACTIS
     Dosage: UNK
  32. SANDOSTATIN LAR DEPOT [Concomitant]
     Active Substance: OCTREOTIDE ACETATE
     Dosage: 30 MG (KIT 30 MG)
  33. SPIRONOLACTONE [Concomitant]
     Active Substance: SPIRONOLACTONE
     Dosage: 25 MG
  34. TESTOSTERONE CYPIONATE [Concomitant]
     Active Substance: TESTOSTERONE CYPIONATE
     Dosage: UNK (200 MG/ML)
  35. VENLAFAXINE [Concomitant]
     Active Substance: VENLAFAXINE HYDROCHLORIDE
     Dosage: 75 MG
  36. VICTOZA [Concomitant]
     Active Substance: LIRAGLUTIDE
     Dosage: UNK (18MG/3ML)
  37. VITAMIN D3 [Concomitant]
     Active Substance: CHOLECALCIFEROL
     Dosage: 2000 IU
  38. XARELTO [Concomitant]
     Active Substance: RIVAROXABAN
     Dosage: 20 MG

REACTIONS (5)
  - Chronic sinusitis [Unknown]
  - COVID-19 [Not Recovered/Not Resolved]
  - Off label use [Unknown]
  - Product dose omission issue [Unknown]
  - Product dose omission in error [Unknown]

NARRATIVE: CASE EVENT DATE: 20220227
